FAERS Safety Report 11693960 (Version 1)
Quarter: 2015Q4

REPORT INFORMATION
  Report Type: Spontaneous
  Country: FR (occurrence: FR)
  Receive Date: 20151103
  Receipt Date: 20151103
  Transmission Date: 20160304
  Serious: Yes (Hospitalization)
  Sender: FDA-Public Use
  Company Number: FR-009507513-1510FRA014760

PATIENT
  Age: 87 Year
  Sex: Female

DRUGS (12)
  1. NORSET [Suspect]
     Active Substance: MIRTAZAPINE
     Dosage: 15 MG, QD
     Route: 048
  2. METEOSPASMYL (ALVERINE CITRATE (+) METHIONINE) [Concomitant]
  3. FUROSEMIDE. [Suspect]
     Active Substance: FUROSEMIDE
     Dosage: 20 MG, QD
     Route: 048
  4. OMEPRAZOLE. [Suspect]
     Active Substance: OMEPRAZOLE
     Dosage: 20 MG, QD
     Route: 048
     Dates: start: 20150810
  5. FORLAX [Concomitant]
     Active Substance: POLYETHYLENE GLYCOL 4000
  6. SPIRONOLACTONE. [Suspect]
     Active Substance: SPIRONOLACTONE
     Dosage: 25 MG, QD
     Route: 048
  7. SPIRIVA [Concomitant]
     Active Substance: TIOTROPIUM BROMIDE MONOHYDRATE
  8. SIMVASTATIN. [Concomitant]
     Active Substance: SIMVASTATIN
  9. TRIMEBUTINE [Concomitant]
     Active Substance: TRIMEBUTINE
  10. TRAMADOL HYDROCHLORIDE. [Concomitant]
     Active Substance: TRAMADOL HYDROCHLORIDE
  11. NITRIDERM-TTS [Suspect]
     Active Substance: NITROGLYCERIN
     Dosage: UNK
     Route: 062
     Dates: start: 20150810
  12. OPATANOL [Concomitant]
     Active Substance: OLOPATADINE

REACTIONS (3)
  - Fracture [Recovered/Resolved]
  - Fall [Recovered/Resolved]
  - Hyponatraemia [Recovered/Resolved]

NARRATIVE: CASE EVENT DATE: 20150810
